FAERS Safety Report 20080945 (Version 1)
Quarter: 2021Q4

REPORT INFORMATION
  Report Type: Spontaneous
  Country: US (occurrence: US)
  Receive Date: 20211117
  Receipt Date: 20211117
  Transmission Date: 20220303
  Serious: No
  Sender: FDA-Public Use
  Company Number: US-PFIZER INC-2021455156

PATIENT
  Age: 68 Year
  Sex: Male

DRUGS (9)
  1. LIPITOR [Suspect]
     Active Substance: ATORVASTATIN CALCIUM
     Dosage: 1 DF, 1X/DAY
     Dates: start: 2016
  2. CYANOCOBALAMIN [Concomitant]
     Active Substance: CYANOCOBALAMIN
     Dosage: 100 UG, 1X/DAY
     Route: 048
  3. ZINC SULFATE [Concomitant]
     Active Substance: ZINC SULFATE
     Dosage: UNK
     Route: 048
  4. BENICAR [Concomitant]
     Active Substance: OLMESARTAN MEDOXOMIL
     Dosage: 1 DF, 1X/DAY
     Dates: start: 2016
  5. RETIN-A [Concomitant]
     Active Substance: TRETINOIN
     Dosage: APPLY TO FACE AT BEDTIME
     Route: 061
  6. CHOLECALCIFEROL [Concomitant]
     Active Substance: CHOLECALCIFEROL
     Dosage: UNK
     Route: 048
     Dates: start: 2019
  7. CINNAMON [CINNAMOMUM VERUM] [Concomitant]
     Dosage: 500 MG
     Route: 048
     Dates: start: 2016
  8. COENZYME Q10 [Concomitant]
     Active Substance: DIETARY SUPPLEMENT\UBIDECARENONE
     Dosage: 200 MG
     Route: 048
     Dates: start: 2019
  9. ASCORBIC ACID [Concomitant]
     Active Substance: ASCORBIC ACID
     Dosage: UNK
     Route: 048
     Dates: start: 2019

REACTIONS (15)
  - Fatigue [Unknown]
  - Myalgia [Unknown]
  - Disturbance in attention [Unknown]
  - Burning sensation [Unknown]
  - Sleep disorder [Unknown]
  - Bone pain [Unknown]
  - Low density lipoprotein increased [Unknown]
  - Vitamin B12 decreased [Unknown]
  - Blood albumin increased [Unknown]
  - Lumbar radiculopathy [Unknown]
  - Hypoaesthesia [Unknown]
  - Head discomfort [Unknown]
  - Paraesthesia [Unknown]
  - Small fibre neuropathy [Unknown]
  - Protein total increased [Unknown]

NARRATIVE: CASE EVENT DATE: 20210201
